FAERS Safety Report 5671938-2 (Version None)
Quarter: 2008Q1

REPORT INFORMATION
  Report Type: 
  Country: None (occurrence: None)
  Receive Date: 20080319
  Receipt Date: 20080310
  Transmission Date: 20080703
  Serious: Yes (Hospitalization)
  Sender: FDA-Public Use
  Company Number: US-JNJFOC-20080302900

PATIENT
  Sex: Female
  Weight: 68.04 kg

DRUGS (9)
  1. DURAGESIC-100 [Suspect]
     Route: 062
  2. DURAGESIC-100 [Suspect]
     Indication: PAIN
     Route: 062
  3. FENTANYL TRANSDERMAL SYSTEM [Suspect]
     Indication: PAIN
     Route: 062
  4. GABAPENTIN [Concomitant]
     Indication: BREAKTHROUGH PAIN
     Route: 048
  5. VICODIN [Concomitant]
     Indication: BREAKTHROUGH PAIN
     Route: 048
  6. SIMVASTATIN [Concomitant]
     Indication: BLOOD CHOLESTEROL
     Route: 048
  7. LEVOXYL [Concomitant]
     Indication: HYPOTHYROIDISM
     Route: 048
  8. XANAX [Concomitant]
     Indication: DRUG USE FOR UNKNOWN INDICATION
     Route: 048
  9. TEMAZEPAM [Concomitant]
     Indication: DRUG USE FOR UNKNOWN INDICATION
     Route: 048

REACTIONS (12)
  - BLOOD PRESSURE INCREASED [None]
  - BREAST CANCER [None]
  - DRUG INEFFECTIVE [None]
  - DYSARTHRIA [None]
  - FALL [None]
  - FLUID RETENTION [None]
  - HOT FLUSH [None]
  - HYPERHIDROSIS [None]
  - JOINT SWELLING [None]
  - LOSS OF CONSCIOUSNESS [None]
  - RASH [None]
  - THERAPY CESSATION [None]
